FAERS Safety Report 4831656-7 (Version None)
Quarter: 2005Q4

REPORT INFORMATION
  Report Type: 
  Country: None (occurrence: None)
  Receive Date: 20051116
  Receipt Date: 20051013
  Transmission Date: 20060501
  Serious: Yes (Death)
  Sender: FDA-Public Use
  Company Number: 05-08-1387

PATIENT
  Sex: Female

DRUGS (1)
  1. CLOZAPINE [Suspect]
     Dosage: UNKNOWN, ORAL
     Route: 048
     Dates: start: 20001201, end: 20050701

REACTIONS (1)
  - DRUG TOXICITY [None]
